FAERS Safety Report 7456466-6 (Version None)
Quarter: 2011Q2

REPORT INFORMATION
  Report Type: 
  Country: None (occurrence: None)
  Receive Date: 20110503
  Receipt Date: 20110426
  Transmission Date: 20111010
  Serious: Yes (Life-Threatening, Hospitalization, Other)
  Sender: FDA-Public Use
  Company Number: US-BAYER-2011-035947

PATIENT
  Sex: Female

DRUGS (2)
  1. AVELOX [Suspect]
     Route: 048
  2. SYNTHROID [Concomitant]
     Dosage: 50 ?G, UNK

REACTIONS (1)
  - ANAPHYLACTIC SHOCK [None]
